FAERS Safety Report 7366256-0 (Version None)
Quarter: 2011Q1

REPORT INFORMATION
  Report Type: 
  Country: None (occurrence: None)
  Receive Date: 20110317
  Receipt Date: 20110317
  Transmission Date: 20110831
  Serious: Yes (Hospitalization)
  Sender: FDA-Public Use
  Company Number: None

PATIENT
  Sex: Male
  Weight: 75.6 kg

DRUGS (6)
  1. DOXORUBICIN HCL [Suspect]
     Dosage: 47.5 MG
  2. ALLOPURINOL [Suspect]
     Dosage: 1200 MG
  3. PEG-L ASPARAGINASE (K-H) [Suspect]
     Dosage: 4750 MG
  4. VINCRISTINE SULFATE [Suspect]
     Dosage: 2 MG
  5. METHYLPREDNISOLONE [Suspect]
     Dosage: 275 MG
  6. CYTARABINE [Suspect]
     Dosage: 70 MG

REACTIONS (3)
  - SYNCOPE [None]
  - UNRESPONSIVE TO STIMULI [None]
  - ORTHOSTATIC HYPOTENSION [None]
